FAERS Safety Report 16562399 (Version 2)
Quarter: 2019Q3

REPORT INFORMATION
  Report Type: Spontaneous
  Country: JP (occurrence: JP)
  Receive Date: 20190711
  Receipt Date: 20190717
  Transmission Date: 20191004
  Serious: Yes (Hospitalization, Other)
  Sender: FDA-Public Use
  Company Number: PHJP2019JP008394

PATIENT
  Age: 47 Year
  Sex: Male

DRUGS (1)
  1. IMATINIB. [Suspect]
     Active Substance: IMATINIB MESYLATE
     Indication: GASTROINTESTINAL STROMAL TUMOUR
     Dosage: UNK
     Route: 065

REACTIONS (7)
  - Hepatic neoplasm [Unknown]
  - Pyrexia [Unknown]
  - Metastases to peritoneum [Recovering/Resolving]
  - Sepsis [Unknown]
  - Liver abscess [Unknown]
  - Abdominal pain [Unknown]
  - Bacterial infection [Unknown]
